FAERS Safety Report 11810037 (Version 2)
Quarter: 2017Q1

REPORT INFORMATION
  Report Type: Spontaneous
  Country: IN (occurrence: IN)
  Receive Date: 20151208
  Receipt Date: 20170302
  Transmission Date: 20170428
  Serious: Yes (Other)
  Sender: FDA-Public Use
  Company Number: IN-SUN PHARMACEUTICAL INDUSTRIES LTD-2015R1-107320

PATIENT
  Age: 29 Year
  Sex: Female
  Weight: 43 kg

DRUGS (1)
  1. PHENYTOIN. [Suspect]
     Active Substance: PHENYTOIN
     Indication: SEIZURE
     Dosage: 100 MG, TID
     Route: 065

REACTIONS (5)
  - Hyperparathyroidism secondary [Recovered/Resolved]
  - Incorrect drug administration duration [Recovered/Resolved]
  - Osteomalacia [Recovered/Resolved]
  - Osteoporosis [Recovered/Resolved]
  - Vitamin D deficiency [Recovered/Resolved]
